FAERS Safety Report 8570268-9 (Version None)
Quarter: 2012Q3

REPORT INFORMATION
  Report Type: 
  Country: None (occurrence: None)
  Receive Date: 20120803
  Receipt Date: 20120719
  Transmission Date: 20120928
  Serious: Yes (Hospitalization, Other)
  Sender: FDA-Public Use
  Company Number: CHPA2012US016233

PATIENT
  Age: 58 Year
  Sex: Female

DRUGS (3)
  1. PERDIEM OVERNIGHT RELIEF PILLS [Suspect]
     Dosage: 1-2 PER DAY
     Route: 048
     Dates: start: 20120701
  2. STOOL SOFTENER [Suspect]
     Dosage: UNK, UNK
     Route: 048
     Dates: start: 20120401, end: 20120520
  3. PERDIEM OVERNIGHT RELIEF PILLS [Suspect]
     Indication: BOWEL MOVEMENT IRREGULARITY
     Dosage: 1-2 PER DAY
     Route: 048
     Dates: start: 20000101, end: 20120401

REACTIONS (6)
  - UNDERDOSE [None]
  - VOMITING [None]
  - ABDOMINAL PAIN UPPER [None]
  - INTESTINAL OBSTRUCTION [None]
  - APHAGIA [None]
  - INCORRECT DRUG ADMINISTRATION DURATION [None]
